FAERS Safety Report 21558484 (Version 2)
Quarter: 2022Q4

REPORT INFORMATION
  Report Type: Spontaneous
  Country: DK (occurrence: GR)
  Receive Date: 20221107
  Receipt Date: 20221216
  Transmission Date: 20230113
  Serious: Yes (Hospitalization)
  Sender: FDA-Public Use
  Company Number: DK-NOVOPROD-956475

PATIENT
  Age: 61 Year
  Sex: Female
  Weight: 108 kg

DRUGS (4)
  1. OZEMPIC [Suspect]
     Active Substance: SEMAGLUTIDE
     Dosage: 1 MG, QW, EVERY MONDAY
     Dates: start: 20220813, end: 20220820
  2. OZEMPIC [Suspect]
     Active Substance: SEMAGLUTIDE
     Indication: Overweight
     Dosage: 0.25 MG
     Dates: start: 20220611
  3. OMEPRAZOLE [Concomitant]
     Active Substance: OMEPRAZOLE
     Indication: Gastrooesophageal reflux disease
     Dosage: 20 MG, QD
     Route: 048
  4. OXYCODONE [Concomitant]
     Active Substance: OXYCODONE
     Indication: Back disorder
     Dosage: 5 MG, QD (PATIENT TAKES THE PRODUCT P.N. NOW)
     Route: 048
     Dates: end: 202209

REACTIONS (2)
  - Dehydration [Recovered/Resolved]
  - Gastritis [Unknown]

NARRATIVE: CASE EVENT DATE: 20220801
